FAERS Safety Report 23192993 (Version 1)
Quarter: 2023Q4

REPORT INFORMATION
  Report Type: Spontaneous
  Country: HU (occurrence: HU)
  Receive Date: 20231116
  Receipt Date: 20231116
  Transmission Date: 20240110
  Serious: Yes (Death, Life-Threatening, Hospitalization, Other)
  Sender: FDA-Public Use
  Company Number: HU-002147023-NVSC2023HU242912

PATIENT
  Sex: Male

DRUGS (3)
  1. ELTROMBOPAG OLAMINE [Suspect]
     Active Substance: ELTROMBOPAG OLAMINE
     Indication: Immune thrombocytopenia
     Dosage: 50 MG
     Route: 065
     Dates: start: 2014
  2. ELTROMBOPAG OLAMINE [Suspect]
     Active Substance: ELTROMBOPAG OLAMINE
     Dosage: 75 MG, QD (/DAY)
     Route: 065
  3. ELTROMBOPAG OLAMINE [Suspect]
     Active Substance: ELTROMBOPAG OLAMINE
     Dosage: UNK
     Route: 065
     Dates: start: 2018

REACTIONS (49)
  - Cerebral haemorrhage [Fatal]
  - Thrombocytopenia [Unknown]
  - Purpura [Unknown]
  - Pericardial effusion [Unknown]
  - Monoclonal B-cell lymphocytosis [Unknown]
  - Erythropoiesis abnormal [Unknown]
  - Splenic infarction [Not Recovered/Not Resolved]
  - Abdominal wall abscess [Recovering/Resolving]
  - Diverticulitis [Unknown]
  - Pelvic inflammatory disease [Unknown]
  - Deep vein thrombosis [Unknown]
  - Pneumonia [Unknown]
  - Sepsis [Unknown]
  - Loss of consciousness [Unknown]
  - Thrombocytopenia [Recovered/Resolved]
  - Diverticulum intestinal [Unknown]
  - Urinary tract infection [Unknown]
  - Upper respiratory tract infection [Unknown]
  - Anaemia [Unknown]
  - Laboratory test abnormal [Unknown]
  - Megakaryocytes [Unknown]
  - Abdominal pain [Unknown]
  - Pleural effusion [Not Recovered/Not Resolved]
  - Lymphadenopathy [Unknown]
  - Granulocytosis [Unknown]
  - Blood sodium decreased [Unknown]
  - C-reactive protein increased [Recovering/Resolving]
  - Neutrophil count increased [Recovering/Resolving]
  - Immature granulocyte count increased [Unknown]
  - Lymphocyte count decreased [Recovering/Resolving]
  - Red blood cell count decreased [Recovering/Resolving]
  - Haemoglobin decreased [Recovering/Resolving]
  - Haematocrit decreased [Recovering/Resolving]
  - Mean cell volume increased [Recovering/Resolving]
  - Red cell distribution width increased [Not Recovered/Not Resolved]
  - Blood fibrinogen increased [Unknown]
  - Fibrin D dimer increased [Unknown]
  - Mean cell haemoglobin decreased [Unknown]
  - Mean platelet volume increased [Unknown]
  - Platelet count increased [Unknown]
  - Red blood cell count increased [Unknown]
  - Lung disorder [Unknown]
  - Gastritis [Unknown]
  - Phagocytosis [Unknown]
  - Headache [Unknown]
  - Nausea [Unknown]
  - Vomiting [Unknown]
  - Anisocoria [Unknown]
  - Skin haemorrhage [Unknown]

NARRATIVE: CASE EVENT DATE: 20140901
